FAERS Safety Report 24652665 (Version 2)
Quarter: 2025Q1

REPORT INFORMATION
  Report Type: Report from Study
  Country: IT (occurrence: IT)
  Receive Date: 20241122
  Receipt Date: 20250108
  Transmission Date: 20250409
  Serious: Yes (Hospitalization)
  Sender: ROCHE
  Company Number: IT-ROCHE-10000138193

PATIENT

DRUGS (1)
  1. EMICIZUMAB [Suspect]
     Active Substance: EMICIZUMAB
     Indication: Factor VIII deficiency
     Route: 065

REACTIONS (14)
  - Haematoma muscle [Unknown]
  - Vascular device infection [Unknown]
  - Thrombosis [Unknown]
  - Haematuria [Unknown]
  - Gastrointestinal haemorrhage [Unknown]
  - Haemarthrosis [Unknown]
  - Subcutaneous haematoma [Unknown]
  - Spinal cord haematoma [Unknown]
  - Shock haemorrhagic [Unknown]
  - Cephalhaematoma [Unknown]
  - Arthritis bacterial [Unknown]
  - Scrotal haematoma [Unknown]
  - Head injury [Unknown]
  - Haemorrhage [Unknown]
